FAERS Safety Report 9517842 (Version 1)
Quarter: 2013Q3

REPORT INFORMATION
  Report Type: Spontaneous
  Country: US (occurrence: None)
  Receive Date: 20130910
  Receipt Date: 20130910
  Transmission Date: 20140515
  Serious: Yes (Other)
  Sender: FDA-Public Use
  Company Number: None

PATIENT
  Age: 60 Year
  Sex: Female
  Weight: 104.33 kg

DRUGS (8)
  1. CYMBALTA [Suspect]
     Indication: DEPRESSION
     Dosage: STRENGTH:  STARTED 60MG NOW 30 MG?QUANTITY:  1 CAPSULE DAILY?FREQUENCY:  1 DAILY?HOW:  BY MOUTH?2006? STIL TRYING TO WEAN OFF ?
     Route: 048
     Dates: start: 2006
  2. CYMBALTA [Suspect]
     Dosage: STRENGTH:  STARTED 60MG NOW 30 MG?QUANTITY:  1 CAPSULE DAILY?FREQUENCY:  1 DAILY?HOW:  BY MOUTH?2006? STIL TRYING TO WEAN OFF ?
     Route: 048
     Dates: start: 2006
  3. CRESTER [Concomitant]
  4. METFORMIN [Concomitant]
  5. DIOVAN [Concomitant]
  6. METOPROLOL TARTRATE [Concomitant]
  7. HYDROCODONE [Concomitant]
  8. PROBIOTIC SUSFENEX [Concomitant]

REACTIONS (7)
  - Headache [None]
  - Depression [None]
  - Arthralgia [None]
  - Photopsia [None]
  - Paranoia [None]
  - Hyperhidrosis [None]
  - Drug ineffective [None]
